FAERS Safety Report 16411749 (Version 1)
Quarter: 2019Q2

REPORT INFORMATION
  Report Type: Spontaneous
  Country: GB (occurrence: GB)
  Receive Date: 20190610
  Receipt Date: 20190610
  Transmission Date: 20190711
  Serious: Yes (Hospitalization, Other)
  Sender: FDA-Public Use
  Company Number: GB-MYLANLABS-2019M1052827

PATIENT
  Age: 80 Year
  Sex: Male

DRUGS (5)
  1. ISOSORBIDE MONONITRATE. [Concomitant]
     Active Substance: ISOSORBIDE MONONITRATE
     Dosage: 20 MILLIGRAM, QD
     Route: 048
  2. WARFARIN [Suspect]
     Active Substance: WARFARIN
     Indication: ATRIAL FIBRILLATION
     Dosage: 6 MILLIGRAM, QD,STABILISED AT 6MG FOR PREVIOUS 12 MONTHS
     Route: 048
  3. DILTIAZEM. [Concomitant]
     Active Substance: DILTIAZEM
     Dosage: 400 MILLIGRAM, QD
     Route: 048
  4. MICONAZOLE. [Interacting]
     Active Substance: MICONAZOLE
     Indication: FUNGAL INFECTION
     Dosage: UNK UNK, Q2W,STARTED 2 WEEKS PRIOR TO HOSPITALISATION
     Route: 003
  5. ATENOLOL. [Concomitant]
     Active Substance: ATENOLOL
     Dosage: 50 MILLIGRAM, QD
     Route: 048

REACTIONS (3)
  - Cerebrovascular accident [Unknown]
  - Drug interaction [Recovered/Resolved]
  - International normalised ratio increased [Recovered/Resolved]

NARRATIVE: CASE EVENT DATE: 20000831
